FAERS Safety Report 14348623 (Version 1)
Quarter: 2018Q1

REPORT INFORMATION
  Report Type: Report from Study
  Country: None (occurrence: CA)
  Receive Date: 20180103
  Receipt Date: 20180103
  Transmission Date: 20180509
  Serious: Yes (Death)
  Sender: FDA-Public Use
  Company Number: CA-ABBVIE-18K-028-2210618-00

PATIENT
  Age: 24 Year
  Sex: Male

DRUGS (1)
  1. HUMIRA [Suspect]
     Active Substance: ADALIMUMAB
     Indication: CROHN^S DISEASE
     Route: 058
     Dates: start: 20170302, end: 2017

REACTIONS (1)
  - Death [Fatal]

NARRATIVE: CASE EVENT DATE: 20171010
